FAERS Safety Report 4828007-0 (Version None)
Quarter: 2005Q4

REPORT INFORMATION
  Report Type: 
  Country: None (occurrence: None)
  Receive Date: 20051115
  Receipt Date: 20051102
  Transmission Date: 20060501
  Serious: Yes (Other)
  Sender: FDA-Public Use
  Company Number: PHBS2005SE16154

PATIENT
  Age: 76 Year
  Sex: Female

DRUGS (10)
  1. ZOMETA [Suspect]
     Indication: MULTIPLE MYELOMA
     Dosage: 4 MG, QMO
     Route: 042
     Dates: start: 20030101
  2. RADIATION THERAPY [Concomitant]
     Route: 065
     Dates: start: 20030601
  3. TRIATEC [Concomitant]
     Route: 048
  4. OXYCONTIN [Concomitant]
     Route: 048
  5. ALVEDON [Concomitant]
     Route: 048
  6. LASIX [Concomitant]
     Route: 048
  7. SELOKEN [Concomitant]
     Route: 048
  8. KALIUM RETARD [Concomitant]
     Route: 048
  9. DUPHALAC [Concomitant]
     Route: 065
  10. LOPERAMIDE [Concomitant]
     Route: 048

REACTIONS (11)
  - BONE DEBRIDEMENT [None]
  - BONE DISORDER [None]
  - EXCESSIVE GRANULATION TISSUE [None]
  - INFLAMMATION [None]
  - OEDEMA [None]
  - OSTEONECROSIS [None]
  - PLASTIC SURGERY [None]
  - TOOTH EXTRACTION [None]
  - TOOTH LOSS [None]
  - WOUND DEBRIDEMENT [None]
  - WOUND TREATMENT [None]
